FAERS Safety Report 9043512 (Version 1)
Quarter: 2013Q1

REPORT INFORMATION
  Report Type: Report from Study
  Country: US (occurrence: US)
  Receive Date: 20130129
  Receipt Date: 20130129
  Transmission Date: 20140127
  Serious: No
  Sender: FDA-Public Use
  Company Number: US-ABBOTT-12P-163-0909441-00

PATIENT
  Age: 69 Year
  Sex: Female

DRUGS (10)
  1. HUMIRA 40 MG/0.8 ML PEN [Suspect]
     Indication: RHEUMATOID ARTHRITIS
     Dates: start: 2008, end: 2010
  2. HUMIRA 40 MG/0.8 ML PEN [Suspect]
     Dates: start: 20110321
  3. COMBIVENT [Concomitant]
     Indication: DYSPNOEA
     Dosage: DAILY
  4. DULERA [Concomitant]
     Indication: DYSPNOEA
     Dosage: DAILY
  5. ACCOLATE [Concomitant]
     Indication: DYSPNOEA
     Dosage: DAILY
     Route: 048
  6. DIOVAN [Concomitant]
     Indication: HYPERTENSION
     Dosage: DAILY
     Route: 048
  7. TRIAZOLAM [Concomitant]
     Indication: INSOMNIA
     Dosage: AT BEDTIME
     Route: 048
  8. FOLIC ACID [Concomitant]
     Indication: RHEUMATOID ARTHRITIS
     Route: 048
  9. METHOTREXATE [Concomitant]
     Indication: RHEUMATOID ARTHRITIS
     Dosage: 4 TABS EVERY WEEK
     Route: 048
  10. PREDNISONE [Concomitant]
     Indication: RHEUMATOID ARTHRITIS
     Route: 048

REACTIONS (2)
  - White blood cell count increased [Recovering/Resolving]
  - Tooth abscess [Unknown]
